FAERS Safety Report 15331596 (Version 2)
Quarter: 2018Q4

REPORT INFORMATION
  Report Type: Spontaneous
  Country: US (occurrence: US)
  Receive Date: 20180829
  Receipt Date: 20180921
  Transmission Date: 20190204
  Serious: Yes (Hospitalization)
  Sender: FDA-Public Use
  Company Number: US-MATRIXX INITIATIVES, INC.-2054437

PATIENT
  Age: 62 Year
  Sex: Male
  Weight: 91.82 kg

DRUGS (7)
  1. METHADONE [Concomitant]
     Active Substance: METHADONE HYDROCHLORIDE
  2. ELIQUIS [Concomitant]
     Active Substance: APIXABAN
  3. ZICAM INTENSE SINUS RELIEF [Suspect]
     Active Substance: OXYMETAZOLINE HYDROCHLORIDE
     Indication: HYPERSENSITIVITY
     Route: 045
  4. LASIX [Concomitant]
     Active Substance: FUROSEMIDE
  5. TERAZOSIN [Concomitant]
     Active Substance: TERAZOSIN\TERAZOSIN HYDROCHLORIDE
  6. LISINOPRIL. [Concomitant]
     Active Substance: LISINOPRIL
  7. ATORVASTATIN CALCIUM. [Concomitant]
     Active Substance: ATORVASTATIN CALCIUM

REACTIONS (8)
  - Drug dependence [None]
  - Chest discomfort [Recovered/Resolved]
  - Oedema [Recovered/Resolved]
  - Asthenia [None]
  - Pulmonary embolism [None]
  - Gout [None]
  - Dry mouth [None]
  - Unevaluable event [None]

NARRATIVE: CASE EVENT DATE: 20180706
